FAERS Safety Report 17373554 (Version 3)
Quarter: 2020Q1

REPORT INFORMATION
  Report Type: Other
  Country: US (occurrence: US)
  Receive Date: 20200205
  Receipt Date: 20200225
  Transmission Date: 20200409
  Serious: No
  Sender: FDA-Public Use
  Company Number: US-AMAG PHARMACEUTICALS, INC.-AMAG202000123

PATIENT
  Age: 37 Year
  Sex: Female

DRUGS (1)
  1. MAKENA [Suspect]
     Active Substance: HYDROXYPROGESTERONE CAPROATE
     Indication: PREMATURE DELIVERY
     Dosage: 250MG/ML, WEEKLY
     Route: 058
     Dates: start: 20191202

REACTIONS (6)
  - Injection site swelling [Recovered/Resolved]
  - Injection site pruritus [Not Recovered/Not Resolved]
  - Product administered at inappropriate site [Unknown]
  - Injection site erythema [Not Recovered/Not Resolved]
  - Urticaria [Recovered/Resolved]
  - Injection site pain [Not Recovered/Not Resolved]

NARRATIVE: CASE EVENT DATE: 2020
